FAERS Safety Report 10046929 (Version 1)
Quarter: 2014Q1

REPORT INFORMATION
  Report Type: Spontaneous
  Country: GB (occurrence: GB)
  Receive Date: 20140331
  Receipt Date: 20140331
  Transmission Date: 20141002
  Serious: Yes (Other)
  Sender: FDA-Public Use
  Company Number: GB-MYLANLABS-2014S1006522

PATIENT
  Age: 71 Year
  Sex: Male

DRUGS (7)
  1. DOXAZOSIN [Suspect]
     Dates: start: 20140207, end: 20140207
  2. ASPIRIN [Suspect]
     Dates: start: 2006, end: 20140207
  3. ATENOLOL [Suspect]
     Dates: end: 20140207
  4. BENDROFLUMETHIAZIDE [Suspect]
     Dates: start: 2004, end: 20140207
  5. IRBESARTAN [Suspect]
     Indication: HYPERTENSION
     Dates: start: 20131209, end: 20140207
  6. LERCANIDIPINE [Suspect]
     Indication: HYPERTENSION
     Dates: start: 2004, end: 20140221
  7. LERCANIDIPINE [Suspect]
     Indication: HYPERTENSION
     Dates: start: 20140303

REACTIONS (9)
  - Rash pruritic [Not Recovered/Not Resolved]
  - Lip swelling [Not Recovered/Not Resolved]
  - Ocular hyperaemia [Not Recovered/Not Resolved]
  - Eye pruritus [Not Recovered/Not Resolved]
  - Rash macular [Not Recovered/Not Resolved]
  - Erythema [Not Recovered/Not Resolved]
  - Erythema [Not Recovered/Not Resolved]
  - Diarrhoea [Not Recovered/Not Resolved]
  - Abdominal pain upper [Not Recovered/Not Resolved]
